FAERS Safety Report 5024553-8 (Version None)
Quarter: 2006Q2

REPORT INFORMATION
  Report Type: 
  Country: None (occurrence: None)
  Receive Date: 20060607
  Receipt Date: 20060524
  Transmission Date: 20061013
  Serious: Yes (Hospitalization)
  Sender: FDA-Public Use
  Company Number: 2006068287

PATIENT
  Age: 52 Year
  Sex: Female
  Weight: 41 kg

DRUGS (7)
  1. UNASYN [Suspect]
     Indication: PNEUMONIA
     Dosage: 6 GRAM (3 GRAM, 2 IN 1 D), INTRAVENOUS
     Route: 042
     Dates: start: 20060308, end: 20060313
  2. THYRADIN-S (LEVOTHYROXINE SODIUM) (LEVOTHYROXINE SODIUM) [Concomitant]
  3. METHYCOBAL (MECOBALAMIN) (MECOBALAMIN) [Concomitant]
  4. RADEN (RANITIDINE HYDROCHLORIDE) (RANITIDINE) [Concomitant]
  5. MAGNESIUM OXIDE (MAGNESIUM OXIDE) [Concomitant]
  6. HUMALOG (INSULIN LISPRO:  GENETICAL RECOMBINATION) (INSULIN) [Concomitant]
  7. LANTUS (INSULIN GLARGINE:  GENETICAL RECOMBINATION (INSULIN GLARGINE) [Concomitant]

REACTIONS (9)
  - ALANINE AMINOTRANSFERASE INCREASED [None]
  - ASPARTATE AMINOTRANSFERASE INCREASED [None]
  - CHROMATURIA [None]
  - DRUG ERUPTION [None]
  - FAECES PALE [None]
  - GAMMA-GLUTAMYLTRANSFERASE INCREASED [None]
  - JAUNDICE [None]
  - LIVER DISORDER [None]
  - RASH GENERALISED [None]
